FAERS Safety Report 5708607-6 (Version None)
Quarter: 2008Q2

REPORT INFORMATION
  Report Type: 
  Country: None (occurrence: None)
  Receive Date: 20080417
  Receipt Date: 20080407
  Transmission Date: 20081010
  Serious: Yes (Hospitalization)
  Sender: FDA-Public Use
  Company Number: JP-WYE-H03643108

PATIENT

DRUGS (3)
  1. AMIODARONE HCL [Suspect]
     Indication: CARDIAC ARREST
     Dosage: UNKNOWN
     Route: 042
  2. AMIODARONE HCL [Suspect]
     Indication: HYPERTROPHIC CARDIOMYOPATHY
  3. AMIODARONE HCL [Suspect]
     Indication: ATRIAL FIBRILLATION

REACTIONS (1)
  - PULMONARY ALVEOLAR HAEMORRHAGE [None]
